FAERS Safety Report 18378113 (Version 4)
Quarter: 2020Q4

REPORT INFORMATION
  Report Type: Spontaneous
  Country: JP (occurrence: JP)
  Receive Date: 20201013
  Receipt Date: 20201204
  Transmission Date: 20210114
  Serious: Yes (Hospitalization, Other)
  Sender: FDA-Public Use
  Company Number: JP-BAYER-2020-214204

PATIENT
  Age: 79 Year
  Sex: Male

DRUGS (8)
  1. ESOMEPRAZOLE. [Concomitant]
     Active Substance: ESOMEPRAZOLE MAGNESIUM
  2. LEPRINTON [Concomitant]
     Active Substance: CARBIDOPA\LEVODOPA
  3. URSO [Concomitant]
     Active Substance: URSODIOL
  4. MAGLAX [MAGNESIUM OXIDE] [Concomitant]
  5. NEXAVAR [Suspect]
     Active Substance: SORAFENIB
     Indication: HEPATOCELLULAR CARCINOMA
     Dosage: 400MG
     Route: 048
     Dates: start: 20190828, end: 20191028
  6. NEXAVAR [Suspect]
     Active Substance: SORAFENIB
     Indication: HEPATOCELLULAR CARCINOMA
     Dosage: 400MG
     Route: 048
     Dates: start: 20200113, end: 20200204
  7. LOSARTAN POTASSIUM. [Concomitant]
     Active Substance: LOSARTAN POTASSIUM
  8. SENNA [Concomitant]
     Active Substance: SENNA LEAF\SENNOSIDES\SENNOSIDES A AND B

REACTIONS (14)
  - Peripheral artery occlusion [Recovered/Resolved with Sequelae]
  - Foot amputation [None]
  - Monoplegia [Recovered/Resolved with Sequelae]
  - Jaundice [Recovering/Resolving]
  - Pyrexia [Recovering/Resolving]
  - Cholangitis [Recovering/Resolving]
  - Bile duct stone [Recovering/Resolving]
  - Pain in extremity [Recovered/Resolved with Sequelae]
  - Sensory disturbance [Recovered/Resolved with Sequelae]
  - Anaesthesia [Recovered/Resolved with Sequelae]
  - Blister [Recovered/Resolved with Sequelae]
  - Skin discolouration [Recovered/Resolved with Sequelae]
  - Movement disorder [Recovered/Resolved with Sequelae]
  - Off label use [None]

NARRATIVE: CASE EVENT DATE: 20190828
